FAERS Safety Report 7322972-8 (Version None)
Quarter: 2011Q1

REPORT INFORMATION
  Report Type: 
  Country: None (occurrence: None)
  Receive Date: 20110301
  Receipt Date: 20110223
  Transmission Date: 20110831
  Serious: Yes (Hospitalization, Other)
  Sender: FDA-Public Use
  Company Number: NL-BRISTOL-MYERS SQUIBB COMPANY-15162613

PATIENT
  Age: 61 Year
  Sex: Male
  Weight: 55 kg

DRUGS (15)
  1. SPIRIVA [Concomitant]
     Dates: start: 20100413
  2. PARACETAMOL [Concomitant]
     Dates: start: 20100510
  3. NEXIUM [Concomitant]
     Dates: start: 20100609
  4. ETOPOSIDE [Suspect]
     Indication: NON-SMALL CELL LUNG CANCER STAGE III
     Dosage: -30APR2010 24MAY2010 TO 29MAY2010,DAY 1 TO DAY 8.
     Route: 065
     Dates: start: 20100426, end: 20100924
  5. FOLIC ACID [Concomitant]
  6. PRIMPERAN TAB [Concomitant]
     Dates: start: 20100510
  7. CISPLATIN [Suspect]
     Indication: NON-SMALL CELL LUNG CANCER STAGE III
     Dosage: 25MAY10:1JUN2010 03MAY2010,FREQUENCY DAY 1 TO DAY 8.
     Route: 065
     Dates: start: 20100426, end: 20100924
  8. VITAMIN B-12 [Concomitant]
  9. DEXAMETHASONE [Concomitant]
     Dates: start: 20100426, end: 20100430
  10. FENTANYL-100 [Concomitant]
     Dates: start: 20100611
  11. OXYCONTIN [Concomitant]
     Indication: PROPHYLAXIS
     Dates: start: 20100609, end: 20100613
  12. LIDOCAINE HYDROCHLORIDE [Concomitant]
     Dates: start: 20100609
  13. OXYNORM [Concomitant]
     Dates: start: 20100510
  14. ASCAL CARDIO [Concomitant]
     Indication: PROPHYLAXIS
     Dates: start: 20100512
  15. SUCRALFATE [Concomitant]
     Dates: start: 20100609

REACTIONS (5)
  - LEUKOPENIA [None]
  - FATIGUE [None]
  - OESOPHAGITIS [None]
  - ANAEMIA [None]
  - THROMBOCYTOPENIA [None]
